FAERS Safety Report 4471450-2 (Version None)
Quarter: 2004Q4

REPORT INFORMATION
  Report Type: 
  Country: None (occurrence: None)
  Receive Date: 20041006
  Receipt Date: 20041006
  Transmission Date: 20050328
  Serious: Yes (Life-Threatening, Hospitalization, Disabling)
  Sender: FDA-Public Use
  Company Number: None

PATIENT
  Age: 42 Year
  Sex: Female
  Weight: 80.7403 kg

DRUGS (1)
  1. DILAUDID [Suspect]
     Indication: POST PROCEDURAL PAIN
     Dosage: .2 MG/ML   INTRAVENOU
     Route: 042
     Dates: start: 20031105, end: 20031105

REACTIONS (4)
  - DYSKINESIA [None]
  - DYSTONIA [None]
  - MEDICATION ERROR [None]
  - POST PROCEDURAL COMPLICATION [None]
